FAERS Safety Report 8315184-2 (Version None)
Quarter: 2012Q2

REPORT INFORMATION
  Report Type: 
  Country: None (occurrence: None)
  Receive Date: 20120426
  Receipt Date: 20120417
  Transmission Date: 20120825
  Serious: Yes (Hospitalization)
  Sender: FDA-Public Use
  Company Number: FR-GLAXOSMITHKLINE-B0796190A

PATIENT
  Sex: Female

DRUGS (2)
  1. NEURONTIN [Concomitant]
     Indication: EPILEPSY
  2. LAMICTAL [Suspect]
     Indication: EPILEPSY
     Dosage: 25MG SEE DOSAGE TEXT
     Route: 048
     Dates: start: 20100927, end: 20101018

REACTIONS (11)
  - SKIN LESION [None]
  - MUCOSAL EROSION [None]
  - DRY EYE [None]
  - STEVENS-JOHNSON SYNDROME [None]
  - OEDEMA MOUTH [None]
  - RASH GENERALISED [None]
  - CONJUNCTIVITIS [None]
  - BLISTER [None]
  - MUCOUS MEMBRANE DISORDER [None]
  - ODYNOPHAGIA [None]
  - VAGINAL MUCOSAL BLISTERING [None]
